FAERS Safety Report 16977011 (Version 1)
Quarter: 2019Q4

REPORT INFORMATION
  Report Type: Spontaneous
  Country: US (occurrence: US)
  Receive Date: 20191030
  Receipt Date: 20191030
  Transmission Date: 20200122
  Serious: Yes (Death)
  Sender: FDA-Public Use
  Company Number: PHHY2018US141455

PATIENT
  Age: 44 Year
  Sex: Female

DRUGS (2)
  1. DABRAFENIB [Suspect]
     Active Substance: DABRAFENIB
     Indication: ACUTE MYELOID LEUKAEMIA
     Dosage: 150 MG, BID
     Route: 065
  2. TRAMETINIB [Suspect]
     Active Substance: TRAMETINIB
     Indication: ACUTE MYELOID LEUKAEMIA
     Dosage: 2 MG, QD
     Route: 065

REACTIONS (2)
  - Acute myeloid leukaemia [Fatal]
  - Malignant neoplasm progression [Fatal]
